FAERS Safety Report 19225359 (Version 1)
Quarter: 2021Q2

REPORT INFORMATION
  Report Type: Spontaneous
  Country: US (occurrence: US)
  Receive Date: 20210506
  Receipt Date: 20210506
  Transmission Date: 20210717
  Serious: No
  Sender: FDA-Public Use
  Company Number: US-CELGENEUS-USA-20210406816

PATIENT
  Sex: Female
  Weight: 69.5 kg

DRUGS (1)
  1. ABRAXANE [Suspect]
     Active Substance: PACLITAXEL
     Indication: BREAST CANCER FEMALE
     Dosage: 165 MILLIGRAM
     Route: 041
     Dates: start: 20191023, end: 20200219

REACTIONS (1)
  - Drug ineffective [Unknown]
